FAERS Safety Report 12141255 (Version 1)
Quarter: 2016Q1

REPORT INFORMATION
  Report Type: Spontaneous
  Country: AR (occurrence: AR)
  Receive Date: 20160303
  Receipt Date: 20160303
  Transmission Date: 20160526
  Serious: Yes (Other)
  Sender: FDA-Public Use
  Company Number: AR-PFIZER INC-2016121456

PATIENT
  Age: 70 Year
  Sex: Male

DRUGS (1)
  1. SUTENT [Suspect]
     Active Substance: SUNITINIB MALATE
     Indication: METASTATIC RENAL CELL CARCINOMA
     Dosage: UNK, CYCLIC (4/2 SCHEME OR 2/1 SCHEME)
     Dates: start: 20130701

REACTIONS (10)
  - Hyperkeratosis [Recovering/Resolving]
  - Diabetes mellitus [Unknown]
  - Blister [Recovering/Resolving]
  - Gait disturbance [Recovering/Resolving]
  - Asthenia [Recovering/Resolving]
  - Injury [Unknown]
  - Thyroid disorder [Recovering/Resolving]
  - Rash papular [Unknown]
  - Dizziness [Not Recovered/Not Resolved]
  - Scratch [Unknown]

NARRATIVE: CASE EVENT DATE: 201402
